FAERS Safety Report 10302074 (Version 1)
Quarter: 2014Q3

REPORT INFORMATION
  Report Type: Spontaneous
  Country: US (occurrence: US)
  Receive Date: 20140714
  Receipt Date: 20140714
  Transmission Date: 20150326
  Serious: No
  Sender: FDA-Public Use
  Company Number: US-009507513-1407USA004997

PATIENT
  Age: 37 Year
  Sex: Female

DRUGS (1)
  1. JANUVIA [Suspect]
     Active Substance: SITAGLIPTIN PHOSPHATE
     Indication: TYPE 2 DIABETES MELLITUS
     Dosage: FREQUENCY OD
     Route: 048
     Dates: start: 200903, end: 200908

REACTIONS (1)
  - Dry skin [Recovered/Resolved with Sequelae]

NARRATIVE: CASE EVENT DATE: 200903
